FAERS Safety Report 5282306-X (Version None)
Quarter: 2007Q1

REPORT INFORMATION
  Report Type: 
  Country: None (occurrence: None)
  Receive Date: 20070331
  Receipt Date: 20070320
  Transmission Date: 20070707
  Serious: Yes (Other)
  Sender: FDA-Public Use
  Company Number: US-PFIZER INC-2007023925

PATIENT
  Sex: Female
  Weight: 56.2 kg

DRUGS (5)
  1. LYRICA [Suspect]
     Indication: COMPLEX PARTIAL SEIZURES
  2. LYRICA [Suspect]
     Indication: TRIGEMINAL NEURALGIA
  3. NAPRELAN [Concomitant]
  4. ATENOLOL [Concomitant]
  5. OXYCODONE HCL [Concomitant]

REACTIONS (7)
  - BURNING SENSATION [None]
  - CONTUSION [None]
  - OEDEMA MOUTH [None]
  - OEDEMA PERIPHERAL [None]
  - SWELLING FACE [None]
  - SYSTEMIC LUPUS ERYTHEMATOSUS RASH [None]
  - VISION BLURRED [None]
